FAERS Safety Report 21688943 (Version 1)
Quarter: 2022Q4

REPORT INFORMATION
  Report Type: Spontaneous
  Country: US (occurrence: None)
  Receive Date: 20221205
  Receipt Date: 20221205
  Transmission Date: 20230113
  Serious: Yes (Other)
  Sender: FDA-Public Use
  Company Number: None

PATIENT
  Age: 20 Year
  Sex: Female

DRUGS (1)
  1. DEFINITY [Suspect]
     Active Substance: PERFLUTREN
     Indication: Echocardiogram
     Dosage: FREQUENCY : ONCE;?
     Route: 042
     Dates: start: 20221121, end: 20221121

REACTIONS (9)
  - Back pain [None]
  - Neck pain [None]
  - Erythema [None]
  - Flushing [None]
  - Dry skin [None]
  - Skin burning sensation [None]
  - Tachycardia [None]
  - Respiratory rate increased [None]
  - Product quality issue [None]

NARRATIVE: CASE EVENT DATE: 20221121
